FAERS Safety Report 6544842-5 (Version None)
Quarter: 2010Q1

REPORT INFORMATION
  Report Type: 
  Country: None (occurrence: None)
  Receive Date: 20100121
  Receipt Date: 20100112
  Transmission Date: 20100710
  Serious: Yes (Other)
  Sender: FDA-Public Use
  Company Number: US-JNJFOC-20090809574

PATIENT
  Sex: Male

DRUGS (1)
  1. LEVAQUIN [Suspect]
     Indication: RECTAL HAEMORRHAGE
     Route: 065

REACTIONS (2)
  - KELOID SCAR [None]
  - TENDON RUPTURE [None]
